FAERS Safety Report 19490338 (Version 1)
Quarter: 2021Q3

REPORT INFORMATION
  Report Type: Spontaneous
  Country: LB (occurrence: LB)
  Receive Date: 20210705
  Receipt Date: 20210705
  Transmission Date: 20211014
  Serious: Yes (Death, Other)
  Sender: FDA-Public Use
  Company Number: LB-ROCHE-2861388

PATIENT
  Age: 70 Year

DRUGS (1)
  1. BEVACIZUMAB. [Suspect]
     Active Substance: BEVACIZUMAB
     Indication: COLON CANCER
     Route: 065

REACTIONS (2)
  - Hepatic function abnormal [Unknown]
  - Hepatic failure [Fatal]

NARRATIVE: CASE EVENT DATE: 201906
